FAERS Safety Report 5847057-9 (Version None)
Quarter: 2008Q3

REPORT INFORMATION
  Report Type: 
  Country: None (occurrence: None)
  Receive Date: 20080815
  Receipt Date: 20080804
  Transmission Date: 20090109
  Serious: Yes (Disabling, Other)
  Sender: FDA-Public Use
  Company Number: CL-PFIZER INC-2008065926

PATIENT
  Age: 46 Year
  Sex: Male

DRUGS (4)
  1. CHANTIX [Suspect]
     Indication: SMOKING CESSATION THERAPY
     Route: 048
  2. FLUPHENAZINE [Concomitant]
  3. THIORIDAZINE HCL [Concomitant]
  4. ANTIBIOTICS [Concomitant]

REACTIONS (2)
  - HALLUCINATION [None]
  - SPEECH DISORDER [None]
